FAERS Safety Report 22092483 (Version 1)
Quarter: 2023Q1

REPORT INFORMATION
  Report Type: Spontaneous
  Country: US (occurrence: US)
  Receive Date: 20230314
  Receipt Date: 20230314
  Transmission Date: 20230418
  Serious: No
  Sender: FDA-Public Use
  Company Number: US-Fresenius Medical Care Renal Therapies Group-FMC-2303-000237

PATIENT
  Sex: Male

DRUGS (1)
  1. DELFLEX [Suspect]
     Active Substance: CALCIUM CHLORIDE\DEXTROSE\MAGNESIUM CHLORIDE\SODIUM CHLORIDE\SODIUM LACTATE
     Indication: End stage renal disease
     Dosage: TREATMENT REGIMEN THAT INCLUDED: PAUSE VOLUME =2500ML; FILL VOLUME = 3000ML, LAST FILL VOLUME =2500,
     Route: 033
     Dates: start: 20170217

REACTIONS (2)
  - Bloody peritoneal effluent [Recovered/Resolved]
  - Abdominal pain [Recovered/Resolved]
